FAERS Safety Report 17284494 (Version 1)
Quarter: 2020Q1

REPORT INFORMATION
  Report Type: Spontaneous
  Country: ZA (occurrence: ZA)
  Receive Date: 20200117
  Receipt Date: 20200117
  Transmission Date: 20200409
  Serious: Yes (Hospitalization)
  Sender: FDA-Public Use
  Company Number: ZA-ASTRAZENECA-2020SE04748

PATIENT
  Age: 26420 Day
  Sex: Male

DRUGS (7)
  1. APIDRA SOLOSTAR [Concomitant]
     Active Substance: INSULIN GLULISINE
     Dosage: UNKNOWN
     Route: 065
  2. ZUVAMOR [Suspect]
     Active Substance: ROSUVASTATIN
     Indication: HYPERCHOLESTEROLAEMIA
     Dosage: 10.0MG UNKNOWN
     Route: 048
     Dates: start: 20191001, end: 20191203
  3. AMLOC [Concomitant]
     Dosage: UNKNOWN
     Route: 065
  4. CARDICOR [Concomitant]
     Active Substance: BISOPROLOL
     Dosage: UNKNOWN
     Route: 065
  5. OPTISULIN SOLOSTAR [Concomitant]
     Dosage: UNKNOWN
     Route: 065
  6. GALVUS [Concomitant]
     Active Substance: VILDAGLIPTIN
     Dosage: UNKNOWN
     Route: 065
  7. ECOTRIN [Concomitant]
     Active Substance: ASPIRIN
     Dosage: UNKNOWN
     Route: 065

REACTIONS (4)
  - Nausea [Not Recovered/Not Resolved]
  - Vomiting [Not Recovered/Not Resolved]
  - Diarrhoea [Not Recovered/Not Resolved]
  - Abdominal pain upper [Not Recovered/Not Resolved]

NARRATIVE: CASE EVENT DATE: 20191009
